FAERS Safety Report 22056949 (Version 2)
Quarter: 2023Q2

REPORT INFORMATION
  Report Type: Spontaneous
  Country: BR (occurrence: BR)
  Receive Date: 20230303
  Receipt Date: 20230531
  Transmission Date: 20230721
  Serious: Yes (Death, Hospitalization, Other)
  Sender: FDA-Public Use
  Company Number: BR-SA-SAC20230301000035

PATIENT
  Age: 66 Year
  Sex: Female
  Weight: 57 kg

DRUGS (5)
  1. SARCLISA [Suspect]
     Active Substance: ISATUXIMAB-IRFC
     Dosage: UNK
     Route: 065
     Dates: start: 20230218, end: 20230218
  2. CARFILZOMIB [Concomitant]
     Active Substance: CARFILZOMIB
  3. HYDROCORTISONE [Concomitant]
     Active Substance: HYDROCORTISONE
  4. MIDAZOLAM [Concomitant]
     Active Substance: MIDAZOLAM
  5. FENTANYL [Concomitant]
     Active Substance: FENTANYL

REACTIONS (14)
  - Pulmonary alveolar haemorrhage [Fatal]
  - Chest discomfort [Unknown]
  - Haemoptysis [Fatal]
  - Oxygen saturation decreased [Fatal]
  - Dyspnoea [Fatal]
  - Malaise [Fatal]
  - Abdominal discomfort [Fatal]
  - Chest pain [Fatal]
  - Respiratory failure [Fatal]
  - Depressed level of consciousness [Fatal]
  - Pleural effusion [Fatal]
  - Plasma cells increased [Fatal]
  - Spinal osteoarthritis [Fatal]
  - Heart rate increased [Fatal]

NARRATIVE: CASE EVENT DATE: 20230218
